FAERS Safety Report 9490637 (Version 1)
Quarter: 2013Q3

REPORT INFORMATION
  Report Type: Spontaneous
  Country: JP (occurrence: None)
  Receive Date: 20130826
  Receipt Date: 20130826
  Transmission Date: 20140515
  Serious: Yes (Hospitalization)
  Sender: FDA-Public Use
  Company Number: CC400190011

PATIENT
  Sex: Female

DRUGS (3)
  1. HEPARIN [Suspect]
     Indication: ANTICOAGULANT THERAPY
  2. OZAGREL [Concomitant]
  3. AGATROBAN [Concomitant]

REACTIONS (3)
  - Heparin-induced thrombocytopenia [None]
  - Thrombosis [None]
  - Cerebral infarction [None]
